FAERS Safety Report 12487146 (Version 2)
Quarter: 2016Q3

REPORT INFORMATION
  Report Type: Spontaneous
  Country: US (occurrence: US)
  Receive Date: 20160622
  Receipt Date: 20160808
  Transmission Date: 20161109
  Serious: No
  Sender: FDA-Public Use
  Company Number: US-ASTRAZENECA-2016SE64323

PATIENT
  Sex: Female

DRUGS (1)
  1. SYMBICORT [Suspect]
     Active Substance: BUDESONIDE\FORMOTEROL FUMARATE DIHYDRATE
     Indication: VOCAL CORD DISORDER
     Dosage: 160MCG/4.5 MCG 1-2 PUFFS ONCE OR TWICE DAILY
     Route: 055

REACTIONS (3)
  - Off label use [Unknown]
  - Product quality issue [Unknown]
  - Candida infection [Not Recovered/Not Resolved]
